FAERS Safety Report 13982670 (Version 2)
Quarter: 2017Q4

REPORT INFORMATION
  Report Type: Report from Study
  Country: None (occurrence: US)
  Receive Date: 20170918
  Receipt Date: 20171005
  Transmission Date: 20180321
  Serious: Yes (Hospitalization, Other)
  Sender: FDA-Public Use
  Company Number: US-ABBVIE-17K-163-2101621-00

PATIENT
  Age: 71 Year
  Sex: Male
  Weight: 99.43 kg

DRUGS (3)
  1. SYNTHROID [Concomitant]
     Active Substance: LEVOTHYROXINE SODIUM
     Indication: HYPOTHYROIDISM
  2. HUMIRA [Suspect]
     Active Substance: ADALIMUMAB
     Indication: RHEUMATOID ARTHRITIS
  3. HUMIRA [Suspect]
     Active Substance: ADALIMUMAB
     Indication: PSORIATIC ARTHROPATHY
     Route: 058
     Dates: start: 20170605, end: 2017

REACTIONS (9)
  - Urinary retention [Unknown]
  - Aortic aneurysm [Recovered/Resolved]
  - Asthenia [Recovering/Resolving]
  - Pollakiuria [Unknown]
  - Weight decreased [Recovered/Resolved]
  - Dysgeusia [Recovering/Resolving]
  - Sepsis [Recovering/Resolving]
  - Oedema [Recovered/Resolved]
  - Back pain [Not Recovered/Not Resolved]

NARRATIVE: CASE EVENT DATE: 2017
